FAERS Safety Report 5277066-2 (Version None)
Quarter: 2007Q1

REPORT INFORMATION
  Report Type: 
  Country: None (occurrence: None)
  Receive Date: 20061213
  Receipt Date: 20050201
  Transmission Date: 20070707
  Serious: Yes (Hospitalization)
  Sender: FDA-Public Use
  Company Number: 2004UW26314

PATIENT
  Age: 32 Year
  Sex: Male
  Weight: 115.6672 kg

DRUGS (3)
  1. SEROQUEL [Suspect]
     Indication: DEPRESSION
     Dosage: 100 MG; PO
     Route: 048
  2. PAXIL [Suspect]
     Indication: DEPRESSION
     Dosage: 25 MG; PO
     Route: 048
  3. ANTIHISTAMINE [Suspect]
     Indication: NASOPHARYNGITIS

REACTIONS (4)
  - HALLUCINATIONS, MIXED [None]
  - OVERDOSE [None]
  - SOMNOLENCE [None]
  - TACHYCARDIA [None]
